FAERS Safety Report 24006922 (Version 3)
Quarter: 2024Q3

REPORT INFORMATION
  Report Type: Spontaneous
  Country: JP (occurrence: JP)
  Receive Date: 20240624
  Receipt Date: 20240919
  Transmission Date: 20241017
  Serious: Yes (Other)
  Sender: BRISTOL MYERS SQUIBB
  Company Number: JP-ONO-2024JP012967

PATIENT
  Age: 76 Year
  Sex: Male

DRUGS (2)
  1. OPDIVO [Suspect]
     Active Substance: NIVOLUMAB
     Indication: Pharyngeal cancer
     Route: 041
  2. OPDIVO [Suspect]
     Active Substance: NIVOLUMAB
     Indication: Head and neck cancer

REACTIONS (4)
  - Inappropriate antidiuretic hormone secretion [Unknown]
  - Myocarditis [Unknown]
  - Immune-mediated hepatic disorder [Unknown]
  - Immune-mediated lung disease [Unknown]
